FAERS Safety Report 4618608-7 (Version None)
Quarter: 2005Q1

REPORT INFORMATION
  Report Type: 
  Country: None (occurrence: None)
  Receive Date: 20050323
  Receipt Date: 20050308
  Transmission Date: 20050727
  Serious: Yes (Hospitalization, Other)
  Sender: FDA-Public Use
  Company Number: 2005-0008121

PATIENT
  Age: 56 Year
  Sex: Male

DRUGS (5)
  1. VIREAD [Suspect]
     Indication: HIV INFECTION
     Dosage: 300 MG, 1 IN 1 D, ORAL
     Route: 048
     Dates: start: 20030425
  2. VIRACEPT [Suspect]
     Indication: HIV INFECTION
     Dosage: ORAL
     Route: 048
     Dates: start: 20030425
  3. KALETRA [Suspect]
     Indication: HIV INFECTION
     Dosage: 4 DOSAGE FORMS, 1 IN 1 D, ORAL
     Route: 048
     Dates: start: 20030409, end: 20030409
  4. STOCRIN (EFAVIRENZ) [Concomitant]
  5. BERIZYM (BERIZYM) [Concomitant]

REACTIONS (4)
  - ARRHYTHMIA [None]
  - DIARRHOEA [None]
  - EXTRASYSTOLES [None]
  - VENTRICULAR EXTRASYSTOLES [None]
